FAERS Safety Report 4920504-2 (Version None)
Quarter: 2006Q1

REPORT INFORMATION
  Report Type: 
  Country: None (occurrence: None)
  Receive Date: 20060223
  Receipt Date: 20060207
  Transmission Date: 20060701
  Serious: Yes (Hospitalization)
  Sender: FDA-Public Use
  Company Number: IT-SANOFI-SYNTHELABO-A06200600035

PATIENT
  Sex: Male

DRUGS (4)
  1. ELOXATIN [Suspect]
     Indication: RECTAL CANCER STAGE III
     Route: 041
     Dates: start: 20051001, end: 20060201
  2. FLUOROURACIL ^TEVA^ [Concomitant]
     Indication: RECTAL CANCER STAGE III
     Dosage: UNK
     Route: 041
  3. LEDERFOLIN [Concomitant]
     Indication: RECTAL CANCER STAGE III
     Dosage: UNK
     Route: 041
  4. ZOFRAN [Concomitant]
     Indication: PREMEDICATION
     Dosage: UNK
     Route: 041

REACTIONS (4)
  - BLOOD CREATININE INCREASED [None]
  - GENERALISED OEDEMA [None]
  - RENAL FAILURE ACUTE [None]
  - URINE OUTPUT DECREASED [None]
